APPROVED DRUG PRODUCT: LEVORPHANOL TARTRATE
Active Ingredient: LEVORPHANOL TARTRATE
Strength: 2MG
Dosage Form/Route: TABLET;ORAL
Application: A211484 | Product #001 | TE Code: AB
Applicant: ACERTIS PHARMACEUTICALS LLC
Approved: Dec 13, 2018 | RLD: No | RS: No | Type: RX